FAERS Safety Report 10563516 (Version 3)
Quarter: 2014Q4

REPORT INFORMATION
  Report Type: Report from Study
  Country: US (occurrence: US)
  Receive Date: 20141104
  Receipt Date: 20141117
  Transmission Date: 20150529
  Serious: No
  Sender: FDA-Public Use
  Company Number: US-SA-2014SA076965

PATIENT
  Age: 59 Year
  Sex: Female

DRUGS (1)
  1. AUBAGIO [Suspect]
     Active Substance: TERIFLUNOMIDE
     Indication: MULTIPLE SCLEROSIS
     Route: 048
     Dates: start: 20040523

REACTIONS (12)
  - Dysgeusia [Unknown]
  - Nausea [Unknown]
  - Malaise [Unknown]
  - Joint stiffness [Unknown]
  - Alopecia [Unknown]
  - Weight decreased [Unknown]
  - Cold sweat [Unknown]
  - Pain [Unknown]
  - Diarrhoea [Unknown]
  - Influenza like illness [Unknown]
  - Bone pain [Unknown]
  - Fatigue [Unknown]
